FAERS Safety Report 15238816 (Version 2)
Quarter: 2018Q4

REPORT INFORMATION
  Report Type: Report from Study
  Country: GB (occurrence: GB)
  Receive Date: 20180803
  Receipt Date: 20181012
  Transmission Date: 20190204
  Serious: Yes (Other)
  Sender: FDA-Public Use
  Company Number: GB-ALLERGAN-1838073US

PATIENT
  Age: 26 Year
  Sex: Female
  Weight: 126 kg

DRUGS (1)
  1. LEVONORGESTREL - BP [Suspect]
     Active Substance: LEVONORGESTREL
     Indication: CONTRACEPTION
     Dosage: 52 MG, SINGLE
     Route: 015
     Dates: start: 20180713

REACTIONS (2)
  - Medication error [Unknown]
  - Neurogenic shock [Recovered/Resolved]

NARRATIVE: CASE EVENT DATE: 20180713
